FAERS Safety Report 20438347 (Version 5)
Quarter: 2022Q4

REPORT INFORMATION
  Report Type: Report from Study
  Country: US (occurrence: US)
  Receive Date: 20220207
  Receipt Date: 20221219
  Transmission Date: 20230112
  Serious: No
  Sender: FDA-Public Use
  Company Number: US-NOVARTISTESTPH-NVSC2022US026392

PATIENT
  Age: 51 Year
  Sex: Female

DRUGS (1)
  1. GILENYA [Suspect]
     Active Substance: FINGOLIMOD HYDROCHLORIDE
     Indication: Relapsing-remitting multiple sclerosis
     Dosage: 0.5 MG, QD
     Route: 048
     Dates: start: 20210918

REACTIONS (10)
  - Pain [Unknown]
  - Eye pain [Unknown]
  - Vertigo [Unknown]
  - Middle insomnia [Unknown]
  - Musculoskeletal discomfort [Unknown]
  - Hypoaesthesia [Unknown]
  - Pain in extremity [Unknown]
  - Headache [Unknown]
  - Central nervous system lesion [Unknown]
  - Fatigue [Unknown]

NARRATIVE: CASE EVENT DATE: 20210918
